FAERS Safety Report 10232726 (Version 1)
Quarter: 2014Q2

REPORT INFORMATION
  Report Type: Spontaneous
  Country: US (occurrence: None)
  Receive Date: 20140611
  Receipt Date: 20140611
  Transmission Date: 20141212
  Serious: Yes (Other)
  Sender: FDA-Public Use
  Company Number: None

PATIENT
  Age: 29 Year
  Sex: Female
  Weight: 62.14 kg

DRUGS (2)
  1. PULMICORT [Suspect]
     Indication: LUNG DISORDER
     Dosage: 1 PUFF 2X DAILY?TWICE DAILY ?INHALATION
     Route: 055
     Dates: start: 20140506, end: 20140509
  2. PULMICORT [Suspect]
     Indication: INFLAMMATION
     Dosage: 1 PUFF 2X DAILY?TWICE DAILY ?INHALATION
     Route: 055
     Dates: start: 20140506, end: 20140509

REACTIONS (8)
  - Feeling hot [None]
  - Pruritus [None]
  - Skin disorder [None]
  - Contusion [None]
  - Swelling [None]
  - Pain [None]
  - Discomfort [None]
  - Hypersensitivity [None]
